FAERS Safety Report 14850088 (Version 1)
Quarter: 2018Q2

REPORT INFORMATION
  Report Type: Spontaneous
  Country: CA (occurrence: CA)
  Receive Date: 20180504
  Receipt Date: 20180504
  Transmission Date: 20180711
  Serious: Yes (Other)
  Sender: FDA-Public Use
  Company Number: CA-TEVA-2018-CA-887652

PATIENT
  Age: 25 Year
  Sex: Male
  Weight: 78 kg

DRUGS (26)
  1. AZITHROMYCIN ANHYDROUS. [Concomitant]
     Active Substance: AZITHROMYCIN ANHYDROUS
  2. FLOVENT HFA [Concomitant]
     Active Substance: FLUTICASONE PROPIONATE
  3. NASACORT AQ [Concomitant]
     Active Substance: TRIAMCINOLONE ACETONIDE
  4. ACETAMINOPHEN. [Concomitant]
     Active Substance: ACETAMINOPHEN
  5. DOMPERIDONE [Concomitant]
     Active Substance: DOMPERIDONE
  6. ZYLOPRIM [Concomitant]
     Active Substance: ALLOPURINOL
  7. HYDRASENSE CONGESTION RELIEF [Concomitant]
  8. SEROQUEL [Concomitant]
     Active Substance: QUETIAPINE FUMARATE
  9. TEARS PLUS [Concomitant]
  10. VITAMIN D2 [Concomitant]
     Active Substance: ERGOCALCIFEROL
  11. QUETIAPINE. [Suspect]
     Active Substance: QUETIAPINE
     Indication: AUTISM SPECTRUM DISORDER
     Route: 048
  12. FLOVENT DISKS - PWR INH 250MCG/BLISTER [Concomitant]
  13. OMEGA 3-6-9 [Concomitant]
     Active Substance: FISH OIL
  14. SYNTHROID [Concomitant]
     Active Substance: LEVOTHYROXINE SODIUM
  15. CETAPHIL ACNE PRINCIPLES [Concomitant]
  16. DIVALPROEX SODIUM. [Concomitant]
     Active Substance: DIVALPROEX SODIUM
  17. BENZACLIN [Concomitant]
     Active Substance: BENZOYL PEROXIDE\CLINDAMYCIN PHOSPHATE
     Route: 061
  18. CALCIUM [Concomitant]
     Active Substance: CALCIUM
  19. CIPRALEX [Concomitant]
     Active Substance: ESCITALOPRAM OXALATE
  20. CONSTELLA [Concomitant]
     Active Substance: LINACLOTIDE
  21. TECTA [Concomitant]
     Active Substance: PANTOPRAZOLE MAGNESIUM
  22. TOVIAZ [Concomitant]
     Active Substance: FESOTERODINE FUMARATE
  23. ZINC GLUCONATE [Concomitant]
     Active Substance: ZINC GLUCONATE
  24. QUETIAPINE. [Suspect]
     Active Substance: QUETIAPINE
     Indication: AFFECTIVE DISORDER
  25. ACACIA GUM [Concomitant]
  26. EPIVAL [Concomitant]
     Active Substance: DIVALPROEX SODIUM

REACTIONS (6)
  - Mood swings [Recovered/Resolved]
  - Anxiety [Recovered/Resolved]
  - Irritability [Recovered/Resolved]
  - Depressed mood [Recovered/Resolved]
  - Mental impairment [Recovered/Resolved]
  - Vomiting [Recovered/Resolved]
